FAERS Safety Report 5415445-0 (Version None)
Quarter: 2007Q3

REPORT INFORMATION
  Report Type: 
  Country: None (occurrence: None)
  Receive Date: 20070813
  Receipt Date: 20070813
  Transmission Date: 20080115
  Serious: No
  Sender: FDA-Public Use
  Company Number: None

PATIENT
  Sex: Male

DRUGS (1)
  1. TRAMADOL HCL [Suspect]
     Indication: DEPENDENCE
     Dosage: ~1000 MG  PER DAY  PO
     Route: 048

REACTIONS (1)
  - DRUG DEPENDENCE [None]
